FAERS Safety Report 21962689 (Version 2)
Quarter: 2023Q1

REPORT INFORMATION
  Report Type: Spontaneous
  Country: US (occurrence: US)
  Receive Date: 20230207
  Receipt Date: 20230217
  Transmission Date: 20230417
  Serious: Yes (Other)
  Sender: FDA-Public Use
  Company Number: US-BAYER-2023A014712

PATIENT
  Age: 42 Year
  Sex: Female

DRUGS (1)
  1. MILK OF MAGNESIA CHERRY [Suspect]
     Active Substance: MAGNESIUM HYDROXIDE
     Indication: Gastrointestinal disorder
     Dosage: 30 ML
     Route: 048
     Dates: start: 20230206, end: 20230206

REACTIONS (4)
  - Choking [Unknown]
  - Therapeutic product effect delayed [Unknown]
  - Therapeutic product effect incomplete [Unknown]
  - Intentional underdose [Unknown]

NARRATIVE: CASE EVENT DATE: 20230201
